FAERS Safety Report 26100731 (Version 1)
Quarter: 2025Q4

REPORT INFORMATION
  Report Type: Spontaneous
  Country: EU (occurrence: EU)
  Receive Date: 20251128
  Receipt Date: 20251128
  Transmission Date: 20260117
  Serious: Yes (Hospitalization)
  Sender: JOHNSON AND JOHNSON
  Company Number: None

PATIENT
  Age: 68 Year
  Sex: Male

DRUGS (3)
  1. COBICISTAT\DARUNAVIR ETHANOLATE [Suspect]
     Active Substance: COBICISTAT\DARUNAVIR ETHANOLATE
     Indication: HIV infection
     Dosage: 1 TABLET DAILY
     Route: 048
     Dates: start: 20151214
  2. TIVICAY [Suspect]
     Active Substance: DOLUTEGRAVIR SODIUM
     Indication: HIV infection
     Dosage: 1 TABLET DAILY
     Route: 048
     Dates: start: 20170627
  3. TRIPTORELIN PAMOATE [Suspect]
     Active Substance: TRIPTORELIN PAMOATE
     Indication: Prostate cancer stage IV
     Dosage: 1 INJECTION EVERY SIX MONTHS
     Route: 030
     Dates: start: 20200228

REACTIONS (2)
  - Rash vesicular [Recovering/Resolving]
  - Herpes simplex [Recovering/Resolving]

NARRATIVE: CASE EVENT DATE: 20250119
